FAERS Safety Report 4970360-1 (Version None)
Quarter: 2006Q2

REPORT INFORMATION
  Report Type: 
  Country: None (occurrence: None)
  Receive Date: 20060412
  Receipt Date: 20060403
  Transmission Date: 20061013
  Serious: Yes (Other)
  Sender: FDA-Public Use
  Company Number: PHNU2006DE01551

PATIENT

DRUGS (2)
  1. IMMUNOSPORIN [Suspect]
     Indication: POLYARTHRITIS
     Dosage: 150 MG, BID
     Route: 048
  2. PREDNISOLONE [Concomitant]
     Dosage: 80MG/DAY

REACTIONS (2)
  - CORNEAL PERFORATION [None]
  - CORNEAL TRANSPLANT [None]
